FAERS Safety Report 23407517 (Version 2)
Quarter: 2024Q2

REPORT INFORMATION
  Report Type: Spontaneous
  Country: CA (occurrence: CA)
  Receive Date: 20240117
  Receipt Date: 20240521
  Transmission Date: 20240716
  Serious: Yes (Other)
  Sender: FDA-Public Use
  Company Number: CA-JNJFOC-20240123372

PATIENT
  Age: 1 Year
  Sex: Male

DRUGS (2)
  1. FAMOTIDINE [Suspect]
     Active Substance: FAMOTIDINE
     Indication: Magnetic resonance imaging
     Route: 065
  2. FAMOTIDINE [Suspect]
     Active Substance: FAMOTIDINE
     Indication: Product used for unknown indication
     Dosage: RECEIVING A 15-MIN INFUSION OF FAMOTIDINE THROUGH HIS PERIPHERAL IV
     Route: 042

REACTIONS (2)
  - Eye swelling [Recovering/Resolving]
  - Lip swelling [Recovering/Resolving]

NARRATIVE: CASE EVENT DATE: 20230101
